FAERS Safety Report 15995619 (Version 2)
Quarter: 2019Q1

REPORT INFORMATION
  Report Type: Spontaneous
  Country: JP (occurrence: JP)
  Receive Date: 20190222
  Receipt Date: 20190314
  Transmission Date: 20190418
  Serious: Yes (Other)
  Sender: FDA-Public Use
  Company Number: JP-ELI_LILLY_AND_COMPANY-JP201902009809

PATIENT
  Age: 85 Year
  Sex: Male

DRUGS (3)
  1. ADCIRCA [Suspect]
     Active Substance: TADALAFIL
     Indication: PRODUCT USED FOR UNKNOWN INDICATION
     Dosage: 40 MG, DAILY
     Route: 048
     Dates: start: 20180327
  2. LIXIANA [Suspect]
     Active Substance: EDOXABAN TOSYLATE
     Indication: PRODUCT USED FOR UNKNOWN INDICATION
     Dosage: 30 MG, DAILY
     Route: 048
     Dates: end: 20190127
  3. OPSUMIT [Concomitant]
     Active Substance: MACITENTAN
     Dosage: 10 MG, DAILY
     Route: 048

REACTIONS (1)
  - Haemorrhagic diathesis [Recovering/Resolving]

NARRATIVE: CASE EVENT DATE: 20190127
